FAERS Safety Report 5893399-0 (Version None)
Quarter: 2008Q3

REPORT INFORMATION
  Report Type: 
  Country: None (occurrence: None)
  Receive Date: 20080923
  Receipt Date: 20080911
  Transmission Date: 20090109
  Serious: Yes (Hospitalization)
  Sender: FDA-Public Use
  Company Number: FR-AMGEN-UK285763

PATIENT
  Sex: Female

DRUGS (2)
  1. ROMIPLOSTIM [Suspect]
     Indication: IDIOPATHIC THROMBOCYTOPENIC PURPURA
     Route: 058
     Dates: start: 20080223
  2. ROMIPLOSTIM [Suspect]
     Route: 058
     Dates: start: 20080319

REACTIONS (3)
  - DERMATITIS EXFOLIATIVE [None]
  - ERYTHROCYANOSIS [None]
  - PERIPHERAL ISCHAEMIA [None]
